FAERS Safety Report 25589779 (Version 2)
Quarter: 2025Q3

REPORT INFORMATION
  Report Type: Report from Study
  Country: US (occurrence: US)
  Receive Date: 20250722
  Receipt Date: 20250801
  Transmission Date: 20251020
  Serious: No
  Sender: SUNOVION
  Company Number: US-SUMITOMO PHARMA SWITZERLAND GMBH-2025SPA008237

PATIENT

DRUGS (10)
  1. ORGOVYX [Suspect]
     Active Substance: RELUGOLIX
     Indication: Prostate cancer
     Route: 048
     Dates: start: 20250430, end: 20250430
  2. ORGOVYX [Suspect]
     Active Substance: RELUGOLIX
     Route: 048
     Dates: start: 20250501
  3. NUBEQA [Concomitant]
     Active Substance: DAROLUTAMIDE
     Route: 065
  4. ALEVE [Concomitant]
     Active Substance: NAPROXEN SODIUM
     Route: 065
  5. ATORVASTATIN CALCIUM [Concomitant]
     Active Substance: ATORVASTATIN CALCIUM
     Route: 065
  6. ENTRESTO [Concomitant]
     Active Substance: SACUBITRIL\VALSARTAN
     Route: 065
  7. METOPROLOL TARTRATE [Concomitant]
     Active Substance: METOPROLOL TARTRATE
     Route: 065
  8. PLAVIX [Concomitant]
     Active Substance: CLOPIDOGREL BISULFATE
     Route: 065
  9. BEMPEDOIC ACID [Concomitant]
     Active Substance: BEMPEDOIC ACID
     Route: 065
  10. NEXLETOL [Concomitant]
     Active Substance: BEMPEDOIC ACID
     Route: 065

REACTIONS (9)
  - Somnolence [Unknown]
  - Glycosylated haemoglobin increased [Unknown]
  - Psoriasis [Unknown]
  - Sticky skin [Unknown]
  - Nasal mucosal disorder [Unknown]
  - Nocturia [Unknown]
  - Weight increased [Unknown]
  - Product dose omission issue [Unknown]
  - Product use issue [Recovered/Resolved]
